FAERS Safety Report 4580066-9 (Version None)
Quarter: 2005Q1

REPORT INFORMATION
  Report Type: 
  Country: None (occurrence: None)
  Receive Date: 20050210
  Receipt Date: 20050201
  Transmission Date: 20050727
  Serious: Yes (Death)
  Sender: FDA-Public Use
  Company Number: 2004-10-1063

PATIENT
  Age: 66 Year
  Sex: Male
  Weight: 89.3586 kg

DRUGS (5)
  1. TEMODAR [Suspect]
     Indication: GLIOBLASTOMA MULTIFORME
     Dosage: 400 MG QDX5D ORAL
     Route: 048
     Dates: start: 20040601, end: 20040901
  2. DECADRON [Concomitant]
  3. TEGRETOL [Concomitant]
  4. ZANTAC [Concomitant]
  5. ENALAPRIL [Concomitant]

REACTIONS (8)
  - ASTHENIA [None]
  - DYSPNOEA [None]
  - GLIOBLASTOMA MULTIFORME [None]
  - INFLUENZA LIKE ILLNESS [None]
  - MALIGNANT NEOPLASM PROGRESSION [None]
  - MOVEMENT DISORDER [None]
  - PYREXIA [None]
  - SUDDEN DEATH [None]
